FAERS Safety Report 11305266 (Version 1)
Quarter: 2015Q3

REPORT INFORMATION
  Report Type: Spontaneous
  Country: US (occurrence: US)
  Receive Date: 20150723
  Receipt Date: 20150723
  Transmission Date: 20151125
  Serious: No
  Sender: FDA-Public Use
  Company Number: US-JNJFOC-20141105109

PATIENT
  Sex: Female
  Weight: 61.24 kg

DRUGS (3)
  1. ZYRTEC [Suspect]
     Active Substance: CETIRIZINE HYDROCHLORIDE
     Indication: SEASONAL ALLERGY
     Route: 048
     Dates: end: 20141104
  2. ZYRTEC [Suspect]
     Active Substance: CETIRIZINE HYDROCHLORIDE
     Route: 048
  3. BLOOD PRESSURE MEDICATION NOS [Concomitant]
     Active Substance: UNSPECIFIED INGREDIENT
     Indication: HYPERTENSION
     Route: 065

REACTIONS (2)
  - Product label confusion [Unknown]
  - Drug ineffective [Unknown]
